FAERS Safety Report 15211867 (Version 3)
Quarter: 2018Q3

REPORT INFORMATION
  Report Type: Spontaneous
  Country: US (occurrence: US)
  Receive Date: 20180728
  Receipt Date: 20180910
  Transmission Date: 20181010
  Serious: No
  Sender: FDA-Public Use
  Company Number: US-JNJFOC-20180721099

PATIENT
  Age: 84 Year
  Sex: Male
  Weight: 86.18 kg

DRUGS (8)
  1. ENALAPRIL [Concomitant]
     Active Substance: ENALAPRIL
     Indication: ATRIAL FIBRILLATION
     Dosage: 10 YEARS IN AM
     Route: 065
  2. LIPITOR [Concomitant]
     Active Substance: ATORVASTATIN CALCIUM
     Indication: BLOOD CHOLESTEROL ABNORMAL
     Dosage: 20 YRS IN PM
     Route: 065
  3. XARELTO [Suspect]
     Active Substance: RIVAROXABAN
     Indication: CEREBROVASCULAR ACCIDENT PROPHYLAXIS
     Dosage: 1 AND 1/2 YEARS
     Route: 048
     Dates: start: 20170426
  4. XARELTO [Suspect]
     Active Substance: RIVAROXABAN
     Indication: ATRIAL FIBRILLATION
     Dosage: 1 AND 1/2 YEARS
     Route: 048
     Dates: start: 20170426
  5. PROSCAR [Concomitant]
     Active Substance: FINASTERIDE
     Indication: HAEMORRHAGE PROPHYLAXIS
     Dosage: 6 YRS IN PM
     Route: 065
  6. FLOMAX [Concomitant]
     Active Substance: TAMSULOSIN HYDROCHLORIDE
     Indication: HAEMORRHAGE PROPHYLAXIS
     Dosage: 4 YRS IN PM
     Route: 065
  7. CHLORTHALIDONE. [Concomitant]
     Active Substance: CHLORTHALIDONE
     Indication: HYPERTENSION
     Dosage: 1 YEAR IN MORNING
     Route: 065
  8. METOPROLOL. [Concomitant]
     Active Substance: METOPROLOL
     Indication: HYPERTENSION
     Dosage: 20 YEARS IN AM
     Route: 065

REACTIONS (1)
  - Drug dose omission [Unknown]

NARRATIVE: CASE EVENT DATE: 20170716
